FAERS Safety Report 10613878 (Version 3)
Quarter: 2015Q1

REPORT INFORMATION
  Report Type: Spontaneous
  Country: HU (occurrence: HU)
  Receive Date: 20141128
  Receipt Date: 20150114
  Transmission Date: 20150720
  Serious: Yes (Other)
  Sender: FDA-Public Use
  Company Number: HU-PFIZER INC-2014323066

PATIENT
  Age: 86 Year
  Sex: Female

DRUGS (3)
  1. VITAMIN B12 [Concomitant]
     Active Substance: CYANOCOBALAMIN
  2. CARDURA XL [Suspect]
     Active Substance: DOXAZOSIN MESYLATE
     Indication: HYPERTENSION
     Dosage: UNK, 2X/DAY MORNING AND EVENING
  3. MILGAMMA [Concomitant]
     Active Substance: VITAMIN B

REACTIONS (18)
  - Gastrointestinal disorder [Unknown]
  - Abdominal distension [Unknown]
  - Necrosis [Unknown]
  - Osteoporosis [Unknown]
  - Blood pressure fluctuation [Recovering/Resolving]
  - Gastrointestinal pain [Unknown]
  - Blood pressure decreased [Recovering/Resolving]
  - Vision blurred [Unknown]
  - Peripheral swelling [Unknown]
  - Blood pressure inadequately controlled [Recovering/Resolving]
  - Dizziness [Unknown]
  - Bronchitis [Unknown]
  - Decreased appetite [Unknown]
  - Eating disorder [Unknown]
  - Muscular dystrophy [Unknown]
  - Malaise [Unknown]
  - Constipation [Unknown]
  - Abnormal faeces [Unknown]

NARRATIVE: CASE EVENT DATE: 2010
